FAERS Safety Report 8171750-9 (Version None)
Quarter: 2012Q1

REPORT INFORMATION
  Report Type: 
  Country: None (occurrence: None)
  Receive Date: 20120228
  Receipt Date: 20120223
  Transmission Date: 20120608
  Serious: Yes (Other)
  Sender: FDA-Public Use
  Company Number: US-GLAXOSMITHKLINE-A0886599A

PATIENT
  Sex: Male
  Weight: 119.1 kg

DRUGS (1)
  1. AVANDIA [Suspect]
     Indication: DIABETES MELLITUS
     Dosage: 8MG PER DAY
     Route: 048
     Dates: start: 20080101

REACTIONS (3)
  - MUSCULOSKELETAL DISORDER [None]
  - CEREBROVASCULAR ACCIDENT [None]
  - ABDOMINAL PAIN [None]
